FAERS Safety Report 18697180 (Version 3)
Quarter: 2021Q1

REPORT INFORMATION
  Report Type: Spontaneous
  Country: CO (occurrence: CO)
  Receive Date: 20210104
  Receipt Date: 20210311
  Transmission Date: 20210419
  Serious: Yes (Other)
  Sender: FDA-Public Use
  Company Number: CO-PFIZER INC-2020079926

PATIENT
  Age: 68 Year
  Sex: Female

DRUGS (4)
  1. LOSARTAN. [Concomitant]
     Active Substance: LOSARTAN
     Indication: HYPERTENSION
     Dosage: 50 MG, 2X/DAY
  2. ZOLEDRONIC ACID. [Concomitant]
     Active Substance: ZOLEDRONIC ACID
     Dosage: UNK
  3. REAMPLA [Suspect]
     Active Substance: PALBOCICLIB
     Indication: BREAST CANCER METASTATIC
     Dosage: 125 MG
     Route: 048
     Dates: start: 2019
  4. CALCIUM [Concomitant]
     Active Substance: CALCIUM
     Dosage: UNK (EVERY 2 MONTHS)

REACTIONS (18)
  - Feeling abnormal [Unknown]
  - Pain [Unknown]
  - Eating disorder [Unknown]
  - Alopecia [Unknown]
  - Tooth disorder [Not Recovered/Not Resolved]
  - Coagulopathy [Unknown]
  - Pruritus [Unknown]
  - Fatigue [Unknown]
  - Fear [Unknown]
  - Pain in extremity [Unknown]
  - Parkinson^s disease [Unknown]
  - Glaucoma [Unknown]
  - Asphyxia [Unknown]
  - Feeling of despair [Unknown]
  - Dry skin [Unknown]
  - Tooth loss [Not Recovered/Not Resolved]
  - Back pain [Unknown]
  - White blood cell count decreased [Unknown]

NARRATIVE: CASE EVENT DATE: 201910
